FAERS Safety Report 18625365 (Version 6)
Quarter: 2021Q2

REPORT INFORMATION
  Report Type: Spontaneous
  Country: US (occurrence: US)
  Receive Date: 20201216
  Receipt Date: 20210428
  Transmission Date: 20210717
  Serious: Yes (Death, Hospitalization, Other)
  Sender: FDA-Public Use
  Company Number: US-CATALYST PHARMACEUTICALS, INC-2020CAT00505

PATIENT
  Age: 74 Year
  Sex: Male
  Weight: 65.76 kg

DRUGS (10)
  1. FIRDAPSE [Suspect]
     Active Substance: AMIFAMPRIDINE PHOSPHATE
     Dosage: 20 MG, 3X/DAY
     Route: 048
     Dates: start: 20201002, end: 20210218
  2. MODERNA COVID?19 VACCINE [Suspect]
     Active Substance: CX-024414
     Dosage: UNK UNK, ONCE
     Dates: start: 202101
  3. PANTOPRAZOLE [Concomitant]
     Active Substance: PANTOPRAZOLE
  4. FIRDAPSE [Suspect]
     Active Substance: AMIFAMPRIDINE PHOSPHATE
     Indication: MYASTHENIC SYNDROME
     Dosage: 10 MG, 3X/DAY
     Route: 048
     Dates: start: 20200918
  5. FUROSEMIDE. [Concomitant]
     Active Substance: FUROSEMIDE
  6. CHEMO [Suspect]
     Active Substance: UNSPECIFIED INGREDIENT
     Indication: SMALL CELL LUNG CANCER METASTATIC
     Dosage: UNK
  7. CHEMO [Suspect]
     Active Substance: UNSPECIFIED INGREDIENT
     Indication: METASTASES TO LIVER
  8. UNKNOWN STATIN [Concomitant]
     Active Substance: UNSPECIFIED INGREDIENT
  9. CHEMOTHERAPY (UNCLASSIFIED) [Suspect]
     Active Substance: UNSPECIFIED INGREDIENT
     Indication: METASTASES TO LYMPH NODES
  10. ASPIRIN. [Concomitant]
     Active Substance: ASPIRIN
     Dosage: 81 MG

REACTIONS (33)
  - Immune-mediated lung disease [Recovered/Resolved]
  - Pulmonary fibrosis [Not Recovered/Not Resolved]
  - Dysphonia [Recovered/Resolved]
  - Pulse abnormal [Not Recovered/Not Resolved]
  - Headache [Recovered/Resolved]
  - Mitral valve incompetence [Not Recovered/Not Resolved]
  - Diarrhoea [Recovered/Resolved]
  - Fatigue [Not Recovered/Not Resolved]
  - Hypotension [Recovered/Resolved]
  - Right atrial dilatation [Not Recovered/Not Resolved]
  - Malaise [Unknown]
  - Muscular weakness [Not Recovered/Not Resolved]
  - Unevaluable event [Unknown]
  - Right ventricular failure [Not Recovered/Not Resolved]
  - Atrial fibrillation [Unknown]
  - Hyperdynamic left ventricle [Not Recovered/Not Resolved]
  - Pulmonary arterial pressure abnormal [Unknown]
  - Interstitial lung disease [Not Recovered/Not Resolved]
  - Aortic valve sclerosis [Not Recovered/Not Resolved]
  - Therapeutic product effect incomplete [Not Recovered/Not Resolved]
  - Coronary artery disease [Not Recovered/Not Resolved]
  - Death [Fatal]
  - Vomiting [Recovered/Resolved]
  - Hypoxia [Recovered/Resolved]
  - Pulmonary oedema [Not Recovered/Not Resolved]
  - Pneumonia [Recovered/Resolved]
  - Blood pressure fluctuation [Not Recovered/Not Resolved]
  - Drug ineffective [Not Recovered/Not Resolved]
  - Tricuspid valve incompetence [Not Recovered/Not Resolved]
  - Asthenia [Recovered/Resolved]
  - Dyspnoea exertional [Recovered/Resolved]
  - Nausea [Recovered/Resolved]
  - Intentional product use issue [Not Recovered/Not Resolved]

NARRATIVE: CASE EVENT DATE: 2020
